FAERS Safety Report 15776284 (Version 1)
Quarter: 2018Q4

REPORT INFORMATION
  Report Type: Other
  Country: IT (occurrence: IT)
  Receive Date: 20181231
  Receipt Date: 20181231
  Transmission Date: 20190205
  Serious: Yes (Hospitalization, Other)
  Sender: FDA-Public Use
  Company Number: IT-APOTEX-2018AP028282

PATIENT
  Age: 28 Year
  Sex: Female

DRUGS (2)
  1. FLUNOX [Suspect]
     Active Substance: FLURAZEPAM HYDROCHLORIDE
     Indication: INTENTIONAL SELF-INJURY
     Dosage: 150 MG, PRN (TOTAL 5 CAPSULE)
     Route: 048
     Dates: start: 20180923, end: 20180923
  2. QUETIAPINE. [Suspect]
     Active Substance: QUETIAPINE
     Indication: INTENTIONAL SELF-INJURY
     Dosage: 2000 MG, SINGLE (10 TABLET IN TOTAL)
     Route: 048
     Dates: start: 20180923, end: 20180923

REACTIONS (2)
  - Intentional self-injury [Recovering/Resolving]
  - Sopor [Recovering/Resolving]

NARRATIVE: CASE EVENT DATE: 20180923
